FAERS Safety Report 8248648-0 (Version None)
Quarter: 2012Q1

REPORT INFORMATION
  Report Type: 
  Country: None (occurrence: None)
  Receive Date: 20120331
  Receipt Date: 20120321
  Transmission Date: 20120608
  Serious: Yes (Disabling, Other)
  Sender: FDA-Public Use
  Company Number: NL-AMGEN-NLDSP2012018763

PATIENT
  Age: 49 Year
  Sex: Female

DRUGS (4)
  1. NAPROXEN [Concomitant]
  2. ENBREL [Suspect]
     Indication: PSORIATIC ARTHROPATHY
     Dosage: 50 MG, 2 TIMES/WK
     Dates: start: 20111007
  3. ENBREL [Suspect]
     Dosage: 50 MG, UNK
  4. RANITIDINE [Concomitant]

REACTIONS (1)
  - SYSTEMIC LUPUS ERYTHEMATOSUS [None]
